FAERS Safety Report 11241819 (Version 3)
Quarter: 2016Q1

REPORT INFORMATION
  Report Type: Spontaneous
  Country: US (occurrence: US)
  Receive Date: 20150706
  Receipt Date: 20160107
  Transmission Date: 20160525
  Serious: Yes (Life-Threatening, Hospitalization)
  Sender: FDA-Public Use
  Company Number: US-BAYER-2015-366425

PATIENT
  Age: 17 Year
  Sex: Female
  Weight: 52.15 kg

DRUGS (2)
  1. MIRENA [Suspect]
     Active Substance: LEVONORGESTREL
     Indication: MENORRHAGIA
  2. MIRENA [Suspect]
     Active Substance: LEVONORGESTREL
     Indication: CONTRACEPTION
     Dosage: 20 MCG/24HR, CONT
     Route: 015
     Dates: start: 20111017, end: 20140327

REACTIONS (13)
  - Uterine perforation [None]
  - Anxiety [Not Recovered/Not Resolved]
  - Device issue [None]
  - Abdominal pain upper [None]
  - Incision site pain [None]
  - General physical health deterioration [None]
  - Injury [None]
  - Abdominal pain lower [None]
  - Device use error [None]
  - Genital haemorrhage [None]
  - Emotional distress [None]
  - Depression [Not Recovered/Not Resolved]
  - Anhedonia [None]

NARRATIVE: CASE EVENT DATE: 20111017
